FAERS Safety Report 19813999 (Version 1)
Quarter: 2021Q3

REPORT INFORMATION
  Report Type: Report from Study
  Country: US (occurrence: US)
  Receive Date: 20210910
  Receipt Date: 20210910
  Transmission Date: 20211014
  Serious: Yes (Other)
  Sender: FDA-Public Use
  Company Number: US-BAYER-2021-186529

PATIENT
  Age: 45 Year
  Sex: Female

DRUGS (2)
  1. STIVARGA [Suspect]
     Active Substance: REGORAFENIB
     Indication: COLON CANCER
     Dosage: 160 MG DAILY FOR 21 DASY ON AND 7 DAYS OFF
     Route: 048
     Dates: start: 20210807
  2. STIVARGA [Suspect]
     Active Substance: REGORAFENIB
     Indication: COLON CANCER
     Dosage: 120 MG, QD
     Route: 048
     Dates: start: 20210417

REACTIONS (16)
  - Pneumonia [Recovering/Resolving]
  - Headache [None]
  - Weight decreased [None]
  - Blood pressure increased [Recovering/Resolving]
  - Fatigue [None]
  - Blood potassium decreased [Not Recovered/Not Resolved]
  - Cough [Recovering/Resolving]
  - Dehydration [None]
  - Decreased appetite [Not Recovered/Not Resolved]
  - Off label use [None]
  - Lung disorder [Recovering/Resolving]
  - Dry skin [Recovering/Resolving]
  - Paraesthesia [Recovering/Resolving]
  - Blister [Recovering/Resolving]
  - Appetite disorder [None]
  - Malaise [None]

NARRATIVE: CASE EVENT DATE: 20210417
